FAERS Safety Report 18414006 (Version 3)
Quarter: 2025Q3

REPORT INFORMATION
  Report Type: Spontaneous
  Country: EU (occurrence: EU)
  Receive Date: 20201022
  Receipt Date: 20250701
  Transmission Date: 20251021
  Serious: Yes (Other)
  Sender: AUROBINDO
  Company Number: EU-MLMSERVICE-20201012-2518965-1

PATIENT
  Age: 79 Year
  Sex: Female
  Weight: 69.7 kg

DRUGS (1)
  1. ALENDRONIC ACID [Suspect]
     Active Substance: ALENDRONIC ACID
     Indication: Osteoporosis
     Dosage: 70 MILLIGRAM, EVERY WEEK (CRUSHED IT, MIXED IT WITH BREAD AND CHEWED IT)
     Route: 048
     Dates: start: 2016, end: 201804

REACTIONS (2)
  - Stomatitis [Recovered/Resolved]
  - Wrong technique in product usage process [Recovered/Resolved]

NARRATIVE: CASE EVENT DATE: 20160101
